FAERS Safety Report 9272909 (Version 3)
Quarter: 2013Q2

REPORT INFORMATION
  Report Type: Report from Study
  Country: US (occurrence: US)
  Receive Date: 20130506
  Receipt Date: 20130509
  Transmission Date: 20140414
  Serious: Yes (Other)
  Sender: FDA-Public Use
  Company Number: US-ASTRAZENECA-2013SE16143

PATIENT
  Age: 497 Month
  Sex: Male
  Weight: 99.8 kg

DRUGS (9)
  1. CRESTOR [Suspect]
     Indication: BLOOD CHOLESTEROL ABNORMAL
     Route: 048
     Dates: start: 20130301, end: 20130311
  2. CRESTOR [Suspect]
     Indication: BLOOD CHOLESTEROL ABNORMAL
     Route: 048
     Dates: start: 20130321
  3. LISINOPRIL/HYDROCHLOROTHIAZIDE 20/25 (WATSON LABORATORIES) [Suspect]
     Indication: BLOOD PRESSURE ABNORMAL
     Dosage: 20 MG-25 MG, DAILY
     Route: 048
     Dates: start: 201201
  4. ATENOLOL [Suspect]
     Indication: BLOOD PRESSURE ABNORMAL
     Route: 065
  5. PRAVASTATIN [Concomitant]
  6. LIPITOR [Concomitant]
  7. TRILIPIX [Concomitant]
  8. XANAX [Concomitant]
     Indication: ANXIETY
     Route: 048
     Dates: start: 2008
  9. SYNTHROID [Concomitant]
     Indication: HYPOTHYROIDISM
     Dates: start: 2012

REACTIONS (18)
  - Asthenia [Recovered/Resolved]
  - Blood cholesterol increased [Unknown]
  - Lethargy [Unknown]
  - Blood triglycerides increased [Unknown]
  - Nausea [Unknown]
  - Dizziness [Unknown]
  - Fatigue [Recovered/Resolved]
  - Asthenia [Unknown]
  - Insomnia [Unknown]
  - Adverse drug reaction [Unknown]
  - Abdominal distension [Unknown]
  - Diarrhoea [Recovering/Resolving]
  - Eye swelling [Not Recovered/Not Resolved]
  - Dysphemia [Not Recovered/Not Resolved]
  - Cough [Not Recovered/Not Resolved]
  - Weight increased [Unknown]
  - Eye pain [Unknown]
  - Frustration [Unknown]
